FAERS Safety Report 7314839-6 (Version None)
Quarter: 2011Q1

REPORT INFORMATION
  Report Type: 
  Country: None (occurrence: None)
  Receive Date: 20110225
  Receipt Date: 20110214
  Transmission Date: 20110831
  Serious: No
  Sender: FDA-Public Use
  Company Number: US-MYLANLABS-2011S1000110

PATIENT
  Age: 16 Year
  Sex: Male
  Weight: 88.45 kg

DRUGS (3)
  1. AMNESTEEM [Suspect]
     Route: 048
     Dates: start: 20090601, end: 20091101
  2. AMNESTEEM [Suspect]
     Indication: ACNE
     Route: 048
     Dates: start: 20090601, end: 20091101
  3. CONCERTA [Concomitant]
     Dosage: ON SCHOOL DAYS ONLY

REACTIONS (4)
  - ANXIETY [None]
  - NEGATIVE THOUGHTS [None]
  - THINKING ABNORMAL [None]
  - OBSESSIVE THOUGHTS [None]
